FAERS Safety Report 5618872-1 (Version None)
Quarter: 2008Q1

REPORT INFORMATION
  Report Type: 
  Country: None (occurrence: None)
  Receive Date: 20080205
  Receipt Date: 20080124
  Transmission Date: 20080703
  Serious: Yes (Hospitalization, Other)
  Sender: FDA-Public Use
  Company Number: 2008S1001400

PATIENT
  Age: 16 Year
  Sex: Female

DRUGS (2)
  1. AMNESTEEM [Suspect]
     Indication: ACNE
     Dosage: 40 MG; DAILY; ORAL
     Route: 048
     Dates: start: 20070716, end: 20071221
  2. AMNESTEEM [Suspect]
     Indication: ACNE
     Dosage: 30 MG; DAILY; ORAL
     Route: 048
     Dates: start: 20070830, end: 20071221

REACTIONS (3)
  - CULTURE WOUND POSITIVE [None]
  - GENITAL LESION [None]
  - STREPTOCOCCAL INFECTION [None]
